FAERS Safety Report 9607275 (Version 1)
Quarter: 2013Q4

REPORT INFORMATION
  Report Type: Other
  Country: ZA (occurrence: ZA)
  Receive Date: 20131009
  Receipt Date: 20131009
  Transmission Date: 20140711
  Serious: Yes (Death)
  Sender: FDA-Public Use
  Company Number: ZA-BRISTOL-MYERS SQUIBB COMPANY-19532936

PATIENT
  Sex: 0
  Weight: 1.38 kg

DRUGS (7)
  1. EFAVIRENZ [Suspect]
     Route: 064
  2. BLEOMYCIN SULFATE [Suspect]
     Route: 064
  3. DOXORUBICIN [Suspect]
     Route: 064
  4. VINCRISTINE [Suspect]
     Route: 064
  5. TENOFOVIR [Suspect]
     Route: 064
  6. LAMIVUDINE [Suspect]
     Route: 064
  7. TRIMETHOPRIM + SULFAMETHOXAZOLE [Suspect]
     Route: 064

REACTIONS (1)
  - Foetal death [Fatal]
